FAERS Safety Report 10037965 (Version 2)
Quarter: 2014Q2

REPORT INFORMATION
  Report Type: Spontaneous
  Country: JP (occurrence: None)
  Receive Date: 20140321
  Receipt Date: 20140411
  Transmission Date: 20141212
  Serious: Yes (Hospitalization)
  Sender: FDA-Public Use
  Company Number: 2014-000736

PATIENT
  Age: 86 Year
  Sex: Male

DRUGS (6)
  1. ACTONEL [Suspect]
     Indication: OSTEOPOROSIS
     Route: 048
     Dates: start: 20140201, end: 20140201
  2. DAONIL (GLIBENCLAMIDE) [Concomitant]
  3. AMLODIPINE BESILATE [Concomitant]
  4. IMIDAPRIL HYDROCHLORIDE (IMIDAPRIL HYDROCHLORIDE) [Concomitant]
  5. PLAVIX (CLOPIDOGREL BISULFATE) [Concomitant]
  6. SEIBULE (MIGLITOL) [Concomitant]

REACTIONS (8)
  - Pain in extremity [None]
  - Inflammation [None]
  - Pyrexia [None]
  - White blood cell disorder [None]
  - C-reactive protein abnormal [None]
  - Decreased appetite [None]
  - Hypoaesthesia [None]
  - Diabetes mellitus inadequate control [None]
